FAERS Safety Report 4631867-X (Version None)
Quarter: 2005Q2

REPORT INFORMATION
  Report Type: 
  Country: None (occurrence: None)
  Receive Date: 20050329
  Receipt Date: 20050218
  Transmission Date: 20051028
  Serious: Yes (Other)
  Sender: FDA-Public Use
  Company Number: HQWYE465922FEB05

PATIENT
  Age: 18 Year
  Sex: Female

DRUGS (1)
  1. OVRAL [Suspect]
     Indication: CONTRACEPTION
     Dosage: ORAL
     Route: 048

REACTIONS (3)
  - FEELING ABNORMAL [None]
  - INTENTIONAL MISUSE [None]
  - PREMATURE MENOPAUSE [None]
